FAERS Safety Report 9265219 (Version 1)
Quarter: 2013Q2

REPORT INFORMATION
  Report Type: Report from Study
  Country: JP (occurrence: JP)
  Receive Date: 20130501
  Receipt Date: 20130501
  Transmission Date: 20140414
  Serious: No
  Sender: FDA-Public Use
  Company Number: JP-VERTEX PHARMACEUTICALS INC-AE-2012-007597

PATIENT
  Age: 47 Year
  Sex: Male

DRUGS (9)
  1. VX-950 (TELAPREVIR) [Suspect]
     Indication: CHRONIC HEPATITIS C
     Dosage: 1500 MG, QD
     Route: 048
     Dates: start: 20120215, end: 20120510
  2. RIBAVIRIN [Suspect]
     Indication: CHRONIC HEPATITIS C
     Dosage: 600 MG, QD
     Route: 048
     Dates: start: 20120215
  3. PEGINTERFERON ALFA-2B [Suspect]
     Indication: CHRONIC HEPATITIS C
     Dosage: 1.5 ?G/KG, QW
     Route: 058
     Dates: start: 20120215
  4. PEGINTERFERON ALFA-2B [Suspect]
     Dosage: 100 ?G/KG,QW
     Route: 058
  5. JANUVIA [Concomitant]
     Dosage: 50 MG, QD
     Route: 048
  6. DERMOVATE [Concomitant]
     Dosage: UNK, QD
     Route: 061
     Dates: start: 20120622, end: 20120717
  7. PREDNISOLONE [Concomitant]
     Dosage: 5 MG, QD
     Route: 048
     Dates: start: 20120623, end: 20120625
  8. POLARAMINE [Concomitant]
     Dosage: 2 MG, QD
     Route: 048
     Dates: start: 20120626, end: 20120716
  9. XYZAL [Concomitant]
     Dosage: 5 MG, QD
     Route: 048
     Dates: start: 20120420

REACTIONS (1)
  - Rash [Recovered/Resolved]
